FAERS Safety Report 14959478 (Version 2)
Quarter: 2018Q2

REPORT INFORMATION
  Report Type: Spontaneous
  Country: US (occurrence: US)
  Receive Date: 20180531
  Receipt Date: 20180606
  Transmission Date: 20180711
  Serious: Yes (Hospitalization)
  Sender: FDA-Public Use
  Company Number: US-TEVA-2018-US-898452

PATIENT
  Age: 47 Year
  Sex: Male

DRUGS (7)
  1. AQUEOUS MAFENIDE ACETATE SOLUTION [Concomitant]
     Dosage: ALL OTHER BURNED AREAS WERE DRESSED WITH GAUZE SOAKED IN AQUEOUS MAFENIDE SOLUTION
     Route: 061
  2. FENTANYL. [Suspect]
     Active Substance: FENTANYL
     Indication: PAIN
     Route: 042
  3. LACTATED RINGERS SOLUTION [Concomitant]
     Active Substance: CALCIUM CHLORIDE\POTASSIUM CHLORIDE\SODIUM CHLORIDE\SODIUM LACTATE
     Indication: RESUSCITATION
     Dosage: CONTINUED AT POST BURN HOUR 4 ;610 ML/H
     Route: 065
  4. ASCORBIC ACID. [Concomitant]
     Active Substance: ASCORBIC ACID
     Dosage: CONTINUED AT POSTBURN HOUR 5; 66 MG/KG/HOUR
     Route: 065
  5. HYDROXOCOBALAMIN [Suspect]
     Active Substance: HYDROXOCOBALAMIN
     Indication: TOXICITY TO VARIOUS AGENTS
     Dosage: 5G OVER 15 MINUTES; AT POST BURN HOUR 19
     Route: 042
  6. BACITRACIN. [Concomitant]
     Active Substance: BACITRACIN
     Dosage: APPLIED TO HIS FACE
     Route: 061
  7. KETAMINE [Concomitant]
     Active Substance: KETAMINE
     Indication: PAIN
     Route: 050

REACTIONS (4)
  - Methaemoglobinaemia [Recovering/Resolving]
  - Hypertension [Recovering/Resolving]
  - Bradycardia [Recovering/Resolving]
  - Mental status changes [Unknown]
